FAERS Safety Report 8887205 (Version 1)
Quarter: 2012Q4

REPORT INFORMATION
  Report Type: Report from Study
  Country: CA (occurrence: CA)
  Receive Date: 20121105
  Receipt Date: 20121105
  Transmission Date: 20130627
  Serious: Yes (Hospitalization, Other)
  Sender: FDA-Public Use
  Company Number: CA-ABBOTT-12P-028-1002017-00

PATIENT
  Age: 51 Year
  Sex: Female
  Weight: 60 kg

DRUGS (4)
  1. HUMIRA PEN [Suspect]
     Indication: CROHN^S DISEASE
     Route: 058
     Dates: start: 20101101, end: 20110403
  2. IMURAN [Concomitant]
     Indication: PRODUCT USED FOR UNKNOWN INDICATION
     Dosage: 150MG
     Dates: start: 20090303
  3. PREDNISONE [Concomitant]
     Indication: PRODUCT USED FOR UNKNOWN INDICATION
     Dosage: Tapering
     Dates: start: 201008
  4. PREDNISONE [Concomitant]
     Dosage: Tapering
     Dates: start: 201103, end: 201105

REACTIONS (1)
  - Ileal stenosis [Unknown]
